FAERS Safety Report 7410658-0 (Version None)
Quarter: 2011Q2

REPORT INFORMATION
  Report Type: 
  Country: None (occurrence: None)
  Receive Date: 20110413
  Receipt Date: 20110208
  Transmission Date: 20111010
  Serious: Yes (Hospitalization, Other)
  Sender: FDA-Public Use
  Company Number: US-BAYER-201035576NA

PATIENT
  Age: 22 Year
  Sex: Female
  Weight: 58.957 kg

DRUGS (8)
  1. PROTONIX [Concomitant]
     Indication: GASTRITIS
  2. LORTAB [Concomitant]
     Dosage: UNK UNK, PRN
  3. YAZ [Suspect]
     Indication: PRODUCT USED FOR UNKNOWN INDICATION
     Dosage: UNK
     Route: 046
     Dates: start: 20060801, end: 20071201
  4. OCELLA [Suspect]
     Route: 048
     Dates: start: 20060801
  5. YASMIN [Suspect]
     Indication: PRODUCT USED FOR UNKNOWN INDICATION
     Route: 046
     Dates: start: 20060801
  6. BENTYL [Concomitant]
  7. ORTHO TRI-CYCLEN [Concomitant]
  8. MIRILAX [Concomitant]

REACTIONS (9)
  - PULMONARY EMBOLISM [None]
  - DEEP VEIN THROMBOSIS [None]
  - CEREBROVASCULAR ACCIDENT [None]
  - DEPRESSION [None]
  - PANIC DISORDER WITH AGORAPHOBIA [None]
  - CHOLECYSTITIS CHRONIC [None]
  - MENTAL DISORDER [None]
  - MYOCARDIAL INFARCTION [None]
  - BILIARY DYSKINESIA [None]
